FAERS Safety Report 9221184 (Version 1)
Quarter: 2013Q2

REPORT INFORMATION
  Report Type: Spontaneous
  Country: NZ (occurrence: NZ)
  Receive Date: 20130410
  Receipt Date: 20130410
  Transmission Date: 20140414
  Serious: Yes (Death)
  Sender: FDA-Public Use
  Company Number: NZ-ABBOTT-13P-118-1036252-00

PATIENT
  Age: 20 Year
  Sex: Female

DRUGS (7)
  1. SODIUM VALPROATE [Suspect]
     Indication: COMPLEX PARTIAL SEIZURES
     Route: 042
  2. METHYLPREDNISOLONE [Concomitant]
     Indication: SYSTEMIC LUPUS ERYTHEMATOSUS
     Route: 042
  3. RITUXIMAB [Concomitant]
     Indication: SYSTEMIC LUPUS ERYTHEMATOSUS
  4. HYDROXYCHLOROQUINE [Concomitant]
     Indication: SYSTEMIC LUPUS ERYTHEMATOSUS
  5. PREDNISONE [Concomitant]
     Indication: SYSTEMIC LUPUS ERYTHEMATOSUS
  6. CYCLOPHOSPHAMIDE [Concomitant]
     Indication: PRODUCT USED FOR UNKNOWN INDICATION
  7. AZATHIOPRINE [Concomitant]
     Indication: PRODUCT USED FOR UNKNOWN INDICATION

REACTIONS (7)
  - Hyperammonaemic encephalopathy [Fatal]
  - Mental status changes [Fatal]
  - Depressed level of consciousness [Fatal]
  - Nausea [Fatal]
  - Vomiting [Fatal]
  - Ataxia [Fatal]
  - Coma [Fatal]
